FAERS Safety Report 17180210 (Version 2)
Quarter: 2021Q1

REPORT INFORMATION
  Report Type: Spontaneous
  Country: CH (occurrence: CH)
  Receive Date: 20191220
  Receipt Date: 20210224
  Transmission Date: 20210419
  Serious: Yes (Other)
  Sender: FDA-Public Use
  Company Number: CH-SA-2019SA348898

PATIENT
  Age: 56 Year
  Sex: Female

DRUGS (23)
  1. BLEOMYCIN SULFATE [Suspect]
     Active Substance: BLEOMYCIN SULFATE
     Indication: ANAL CANCER RECURRENT
     Dosage: 10 MG, TOTAL
     Route: 042
     Dates: start: 20190725, end: 20190725
  2. IODIXANOL. [Suspect]
     Active Substance: IODIXANOL
     Indication: ANAL CANCER RECURRENT
     Dosage: 270 G/ML, TOTAL
     Route: 013
     Dates: start: 20191003, end: 20191003
  3. BLEOMYCIN SULFATE [Suspect]
     Active Substance: BLEOMYCIN SULFATE
     Indication: ANAL SQUAMOUS CELL CARCINOMA
     Dosage: 10 MG,IN TOTAL. 2ND CYCLE
     Route: 042
     Dates: start: 20190829, end: 20190829
  4. FLUOROURACIL. [Suspect]
     Active Substance: FLUOROURACIL
     Dosage: 429 MG, Q4D
     Route: 013
     Dates: start: 20191003, end: 20191004
  5. OXALIPLATIN. [Suspect]
     Active Substance: OXALIPLATIN
     Dosage: 25.5 MG, Q4D
     Route: 013
     Dates: start: 20191003, end: 20191004
  6. FLUOROURACIL. [Suspect]
     Active Substance: FLUOROURACIL
     Indication: ANAL CANCER RECURRENT
     Dosage: CYCLICAL, CURATIVE, CHEMORADIOTHERAPY,2 CYCLES
     Dates: start: 2017, end: 2017
  7. FLUOROURACIL. [Suspect]
     Active Substance: FLUOROURACIL
     Dosage: DOSE RE?INTRODUCED
     Route: 013
  8. MITOMYCIN. [Suspect]
     Active Substance: MITOMYCIN
     Indication: ANAL CANCER RECURRENT
     Dosage: 1.872 MG, Q4D
     Route: 013
     Dates: start: 20190725, end: 20190726
  9. MITOMYCIN. [Suspect]
     Active Substance: MITOMYCIN
     Dosage: 1.872 MG, Q4D
     Route: 013
     Dates: start: 20191003, end: 20191004
  10. METHOTREXATE. [Suspect]
     Active Substance: METHOTREXATE
     Dosage: 43 MG, Q4D
     Route: 013
     Dates: start: 20190829, end: 20190830
  11. METHOTREXATE. [Suspect]
     Active Substance: METHOTREXATE
     Dosage: 43 MG, Q4D
     Route: 013
     Dates: start: 20191003, end: 20191004
  12. IODIXANOL. [Suspect]
     Active Substance: IODIXANOL
     Dosage: DOSE RE?INTRODUCED
     Route: 013
  13. OXALIPLATIN. [Suspect]
     Active Substance: OXALIPLATIN
     Dosage: DOSE RE?INTRODUCED
     Route: 013
  14. MITOMYCIN. [Suspect]
     Active Substance: MITOMYCIN
     Indication: ANAL SQUAMOUS CELL CARCINOMA
     Dosage: CYCLICAL, CURATIVE, CHEMORADIOTHERAPY,2 CYCLES
     Dates: start: 2017, end: 2017
  15. BLEOMYCIN SULFATE [Suspect]
     Active Substance: BLEOMYCIN SULFATE
     Dosage: DOSE RE?INTRODUCED
     Route: 042
  16. OXALIPLATIN. [Suspect]
     Active Substance: OXALIPLATIN
     Indication: ANAL CANCER RECURRENT
     Dosage: 25.5 MG, Q4D
     Route: 013
     Dates: start: 20190725, end: 20190726
  17. OXALIPLATIN. [Suspect]
     Active Substance: OXALIPLATIN
     Dosage: 25.5 MG, Q4D
     Route: 013
     Dates: start: 20190829, end: 20190830
  18. FLUOROURACIL. [Suspect]
     Active Substance: FLUOROURACIL
     Indication: ANAL SQUAMOUS CELL CARCINOMA
     Dosage: 429 MG, Q4D
     Route: 013
     Dates: start: 20190725, end: 20190726
  19. MITOMYCIN. [Suspect]
     Active Substance: MITOMYCIN
     Dosage: DOSE RE?INTRODUCED
     Route: 013
  20. BLEOMYCIN SULFATE [Suspect]
     Active Substance: BLEOMYCIN SULFATE
     Dosage: 10 MG,IN TOTAL. 3RD CYCLE
     Route: 042
     Dates: start: 20191003, end: 20191003
  21. METHOTREXATE. [Suspect]
     Active Substance: METHOTREXATE
     Dosage: DOSE RE?INTRODUCED
     Route: 013
  22. FLUOROURACIL. [Suspect]
     Active Substance: FLUOROURACIL
     Dosage: 429 MG, Q4D
     Route: 013
     Dates: start: 20190829, end: 20190830
  23. METHOTREXATE. [Suspect]
     Active Substance: METHOTREXATE
     Indication: ANAL CANCER RECURRENT
     Dosage: 43 MG, Q4D
     Route: 013
     Dates: start: 20190725, end: 20190726

REACTIONS (4)
  - Livedo reticularis [Recovered/Resolved]
  - Necrosis [Unknown]
  - Livedo reticularis [Recovered/Resolved]
  - Haemorrhage [Unknown]

NARRATIVE: CASE EVENT DATE: 20190829
